FAERS Safety Report 7240339-8 (Version None)
Quarter: 2011Q1

REPORT INFORMATION
  Report Type: 
  Country: None (occurrence: None)
  Receive Date: 20110113
  Receipt Date: 20110107
  Transmission Date: 20110831
  Serious: Yes (Other)
  Sender: FDA-Public Use
  Company Number: SP03295

PATIENT
  Age: 19 Year
  Sex: Male

DRUGS (7)
  1. TURBOINHALER [Concomitant]
  2. FORMOTEROL INHALER [Concomitant]
  3. MOVIPREP [Suspect]
     Indication: BOWEL PREPARATION
     Dosage: ORAL
     Route: 048
     Dates: start: 20100101, end: 20100101
  4. ENTOCORT EC [Concomitant]
  5. BALNEUM 9GLYCINE MAX SEED OIL) [Concomitant]
  6. BRICANYL [Concomitant]
  7. LORATADINE [Concomitant]

REACTIONS (1)
  - ANAPHYLACTIC SHOCK [None]
